FAERS Safety Report 4887722-3 (Version None)
Quarter: 2006Q1

REPORT INFORMATION
  Report Type: 
  Country: None (occurrence: None)
  Receive Date: 20060118
  Receipt Date: 20060106
  Transmission Date: 20060701
  Serious: Yes (Death, Hospitalization)
  Sender: FDA-Public Use
  Company Number: 200514461GDS

PATIENT
  Age: 6 Month
  Sex: Male
  Weight: 7 kg

DRUGS (4)
  1. ASPIRIN [Suspect]
     Indication: KAWASAKI'S DISEASE
     Dosage: SEE IMAGE
     Route: 048
     Dates: start: 20050329, end: 20050331
  2. ASPIRIN [Suspect]
     Indication: KAWASAKI'S DISEASE
     Dosage: SEE IMAGE
     Route: 048
     Dates: start: 20050401
  3. VENOGLOBULIN-I [Concomitant]
  4. FLUMARIN [Concomitant]

REACTIONS (13)
  - ASPARTATE AMINOTRANSFERASE INCREASED [None]
  - BLOOD LACTATE DEHYDROGENASE INCREASED [None]
  - C-REACTIVE PROTEIN INCREASED [None]
  - ENCEPHALOPATHY [None]
  - GRAND MAL CONVULSION [None]
  - HAEMATOCRIT DECREASED [None]
  - HAEMOGLOBIN DECREASED [None]
  - LEUKOCYTOSIS [None]
  - LIMB DISCOMFORT [None]
  - NECROSIS [None]
  - RESPIRATORY ARREST [None]
  - VIRAL INFECTION [None]
  - XANTHOCHROMIA [None]
